FAERS Safety Report 23288303 (Version 1)
Quarter: 2023Q4

REPORT INFORMATION
  Report Type: Report from Study
  Country: IE (occurrence: IE)
  Receive Date: 20231212
  Receipt Date: 20231212
  Transmission Date: 20240109
  Serious: Yes (Hospitalization)
  Sender: FDA-Public Use
  Company Number: IE-AstraZeneca-2023A277820

PATIENT
  Age: 194 Day
  Sex: Male

DRUGS (3)
  1. SYNAGIS [Suspect]
     Active Substance: PALIVIZUMAB
     Indication: Chronic respiratory disease
     Dosage: 15 MG/ KG EVERY FOUR WEEKS
     Route: 030
     Dates: start: 20231006
  2. SYNAGIS [Suspect]
     Active Substance: PALIVIZUMAB
     Indication: Premature baby
     Dosage: 15 MG/ KG EVERY FOUR WEEKS
     Route: 030
     Dates: start: 20231107
  3. SYNAGIS [Suspect]
     Active Substance: PALIVIZUMAB
     Indication: Bronchopulmonary dysplasia
     Dosage: 15 MG/ KG EVERY FOUR WEEKS
     Route: 030
     Dates: start: 20231204

REACTIONS (2)
  - Hypophagia [Unknown]
  - Vomiting [Unknown]

NARRATIVE: CASE EVENT DATE: 20231108
